FAERS Safety Report 4892586-8 (Version None)
Quarter: 2006Q1

REPORT INFORMATION
  Report Type: 
  Country: None (occurrence: None)
  Receive Date: 20060124
  Receipt Date: 20060113
  Transmission Date: 20060701
  Serious: Yes (Hospitalization)
  Sender: FDA-Public Use
  Company Number: FRP05001003

PATIENT
  Age: 75 Year
  Sex: Female
  Weight: 57 kg

DRUGS (11)
  1. ACTONEL [Suspect]
     Indication: OSTEOPOROSIS
     Dosage: 35 MG, 1 /WEEK, ORAL
     Route: 048
     Dates: start: 20050430, end: 20051218
  2. CACIT D3 (CALCIUM CARBONATE, COLECALCIFEROL) EFFERVESCENT GRANULES, 44 [Suspect]
     Indication: OSTEOPOROSIS
     Dosage: ORAL
     Route: 048
  3. BREXIN ^ROBAPHARM^ (PIROXICAM BETADEX) [Suspect]
     Dosage: ORAL
     Route: 048
     Dates: end: 20051209
  4. VOLTAREN [Suspect]
     Indication: PAIN
     Dosage: ORAL
     Route: 048
     Dates: end: 20051209
  5. VASTAREL ^SERVIER^ (TRIMETAZIDINE HYDROCHLORIDE) [Concomitant]
  6. ACETAMINOPHEN [Concomitant]
  7. TRAMADOL HCL [Concomitant]
  8. BROMAZEPAM (BROMAZEPAM) [Concomitant]
  9. PIASCLEDINE (PERSEA AMERICANA OIL, GLYCINE MAX SEED OIL) [Concomitant]
  10. CEFIXIME [Concomitant]
  11. OMEPRAZOLE [Concomitant]

REACTIONS (12)
  - ANAEMIA [None]
  - COLONIC POLYP [None]
  - DIZZINESS [None]
  - FALL [None]
  - INSOMNIA [None]
  - LOSS OF CONSCIOUSNESS [None]
  - MALAISE [None]
  - MUSCLE SPASMS [None]
  - MYALGIA [None]
  - PAIN [None]
  - RECTAL HAEMORRHAGE [None]
  - VERTIGO [None]
